FAERS Safety Report 16728369 (Version 1)
Quarter: 2019Q3

REPORT INFORMATION
  Report Type: Report from Study
  Country: IT (occurrence: IT)
  Receive Date: 20190822
  Receipt Date: 20190822
  Transmission Date: 20191005
  Serious: Yes (Hospitalization)
  Sender: FDA-Public Use
  Company Number: IT-TEVA-2019-IT-1094821

PATIENT
  Age: 68 Year
  Sex: Male

DRUGS (10)
  1. BLOPRESS 8 MG COMPRESSE [Concomitant]
  2. LASIX [Concomitant]
     Active Substance: FUROSEMIDE
  3. LUVION 50 MG COMPRESSE [Concomitant]
     Active Substance: CANRENONE
  4. ALLOPURINOL. [Suspect]
     Active Substance: ALLOPURINOL
     Dosage: 1 DOSAGE FORM, 1DAY
     Route: 048
     Dates: start: 20190420, end: 20190516
  5. CONGESCOR 1,25 MG, COMPRESSE FILM-RIVESTITE [Concomitant]
     Active Substance: BISOPROLOL FUMARATE
  6. FOLINA 5 MG CAPSULE MOLLI [Concomitant]
  7. CARDIOASPIRIN 100 MG COMPRESSE GASTRORESISTENTI [Concomitant]
     Active Substance: ASPIRIN
  8. CALCIO CARBONATO EG 1 G COMPRESSE EFFERVESCENTI [Concomitant]
  9. TORVAST 10 MG COMPRESSE RIVESTITE CON FILM [Concomitant]
     Active Substance: ATORVASTATIN CALCIUM
  10. LANSOX 15 MG CAPSULE RIGIDE [Concomitant]

REACTIONS (2)
  - Urticaria [Unknown]
  - Sopor [Unknown]

NARRATIVE: CASE EVENT DATE: 20190516
